FAERS Safety Report 8474302-6 (Version None)
Quarter: 2012Q2

REPORT INFORMATION
  Report Type: 
  Country: None (occurrence: None)
  Receive Date: 20120628
  Receipt Date: 20120619
  Transmission Date: 20120825
  Serious: Yes (Hospitalization)
  Sender: FDA-Public Use
  Company Number: US-BAYER-2012-061878

PATIENT
  Age: 37 Year
  Sex: Female
  Weight: 55.782 kg

DRUGS (12)
  1. SINGULAIR [Concomitant]
  2. YASMIN [Suspect]
  3. OMEPRAZOLE [Concomitant]
  4. FLUTICASONE PROPIONATE [Concomitant]
  5. ZYRTEC [Concomitant]
  6. QVAR 40 [Concomitant]
  7. DROSPIRENONE AND ETHINYL ESTRADIOL [Suspect]
     Indication: ENDOMETRIOSIS
     Dosage: UNK
     Dates: start: 20100302, end: 20100429
  8. DROSPIRENONE AND ETHINYL ESTRADIOL [Suspect]
     Indication: CONTRACEPTION
  9. SYMBICORT [Concomitant]
  10. ALBUTEROL [Concomitant]
  11. PREDNISONE TAB [Concomitant]
  12. ADVAIR DISKUS 100/50 [Concomitant]

REACTIONS (4)
  - PAIN [None]
  - DYSPNOEA [None]
  - PULMONARY EMBOLISM [None]
  - INJURY [None]
